FAERS Safety Report 21285571 (Version 2)
Quarter: 2022Q3

REPORT INFORMATION
  Report Type: Report from Study
  Country: MY (occurrence: MY)
  Receive Date: 20220902
  Receipt Date: 20220915
  Transmission Date: 20221026
  Serious: Yes (Hospitalization)
  Sender: FDA-Public Use
  Company Number: MY-NOVARTISPH-NVSC2022MY193154

PATIENT
  Age: 61 Year
  Sex: Female
  Weight: 55 kg

DRUGS (5)
  1. DABRAFENIB [Suspect]
     Active Substance: DABRAFENIB
     Indication: Metastatic malignant melanoma
     Dosage: 150 MG, BID
     Route: 048
     Dates: start: 20220627, end: 20220706
  2. DABRAFENIB [Suspect]
     Active Substance: DABRAFENIB
     Dosage: 75 MG, BID (DOSE REDUCED)
     Route: 048
     Dates: start: 20220823
  3. TRAMETINIB [Suspect]
     Active Substance: TRAMETINIB
     Indication: Metastatic malignant melanoma
     Dosage: 2 MG, QD
     Route: 048
     Dates: start: 20220627, end: 20220706
  4. TRAMETINIB [Suspect]
     Active Substance: TRAMETINIB
     Dosage: 2 MG, QD
     Route: 048
     Dates: start: 20220823
  5. PAN [Concomitant]
     Indication: Pyrexia
     Dosage: 1 UNK
     Route: 065
     Dates: start: 20220624, end: 20220711

REACTIONS (1)
  - Arthritis bacterial [Recovered/Resolved]

NARRATIVE: CASE EVENT DATE: 20220706
